FAERS Safety Report 7316342-6 (Version None)
Quarter: 2011Q1

REPORT INFORMATION
  Report Type: 
  Country: None (occurrence: None)
  Receive Date: 20110225
  Receipt Date: 20110221
  Transmission Date: 20110831
  Serious: Yes (Death, Other)
  Sender: FDA-Public Use
  Company Number: US-US-EMD SERONO, INC.-7043270

PATIENT
  Sex: Female

DRUGS (5)
  1. AMPYRA [Suspect]
     Route: 048
     Dates: end: 20110101
  2. REBIF [Suspect]
     Indication: MULTIPLE SCLEROSIS
     Dates: end: 20110101
  3. AEROBID [Concomitant]
     Dates: end: 20110101
  4. AFRIN ALLERGY SPRAY [Concomitant]
     Dates: end: 20110101
  5. BENADRYL [Concomitant]
     Dates: end: 20110101

REACTIONS (2)
  - CALCULUS BLADDER [None]
  - ENDOMETRIAL CANCER METASTATIC [None]
